FAERS Safety Report 7607056-3 (Version None)
Quarter: 2011Q3

REPORT INFORMATION
  Report Type: 
  Country: None (occurrence: None)
  Receive Date: 20110706
  Receipt Date: 20110627
  Transmission Date: 20111222
  Serious: Yes (Hospitalization, Other)
  Sender: FDA-Public Use
  Company Number: 201110695

PATIENT
  Age: 24 Year
  Sex: Male

DRUGS (1)
  1. LIORESAL [Suspect]
     Indication: MUSCLE SPASTICITY
     Dosage: MCG, DAILY, INTRATHECAL
     Route: 037

REACTIONS (6)
  - CYSTITIS [None]
  - BACK PAIN [None]
  - KIDNEY INFECTION [None]
  - DRUG INEFFECTIVE [None]
  - FAECALOMA [None]
  - MEDICAL DEVICE COMPLICATION [None]
